FAERS Safety Report 8273454-0 (Version None)
Quarter: 2012Q2

REPORT INFORMATION
  Report Type: 
  Country: None (occurrence: None)
  Receive Date: 20120411
  Receipt Date: 20120404
  Transmission Date: 20120825
  Serious: Yes (Other)
  Sender: FDA-Public Use
  Company Number: US-NOVOPROD-348853

PATIENT
  Age: 64 Year
  Sex: Male
  Weight: 73.923 kg

DRUGS (4)
  1. EXCEDRIN                           /00110301/ [Concomitant]
     Indication: PAIN
     Dosage: UNKNOWN, PRN
     Route: 048
  2. NOVOLOG [Suspect]
     Dosage: SLIDING SCALE TID AND PRN 2-3U AT BEDTIME
     Route: 058
     Dates: end: 20120301
  3. LANTUS [Concomitant]
     Indication: TYPE 1 DIABETES MELLITUS
     Dosage: 12 U, QD
     Route: 058
     Dates: start: 20090101
  4. NOVOLOG [Suspect]
     Indication: TYPE 1 DIABETES MELLITUS
     Dosage: INCREASED DOSES UP TO 20U TID
     Route: 058
     Dates: start: 20120301

REACTIONS (4)
  - MALAISE [None]
  - DRUG INEFFECTIVE [None]
  - HYPERGLYCAEMIA [None]
  - DEHYDRATION [None]
